FAERS Safety Report 4668110-1 (Version None)
Quarter: 2005Q2

REPORT INFORMATION
  Report Type: 
  Country: None (occurrence: None)
  Receive Date: 20050521
  Receipt Date: 20050331
  Transmission Date: 20051028
  Serious: Yes (Death, Other)
  Sender: FDA-Public Use
  Company Number: PHNU2005DE01483

PATIENT
  Sex: Male

DRUGS (2)
  1. AREDIA [Suspect]
     Indication: PROSTATE CANCER METASTATIC
     Dates: start: 19980101, end: 20000101
  2. ZOMETA [Suspect]
     Indication: PROSTATE CANCER METASTATIC
     Dosage: 4 MG, UNK
     Dates: start: 20001001

REACTIONS (5)
  - ASEPTIC NECROSIS BONE [None]
  - JAW DISORDER [None]
  - MALIGNANT NEOPLASM PROGRESSION [None]
  - OSTEONECROSIS [None]
  - PROSTATE CANCER METASTATIC [None]
